FAERS Safety Report 15553287 (Version 4)
Quarter: 2019Q3

REPORT INFORMATION
  Report Type: Spontaneous
  Country: CA (occurrence: CA)
  Receive Date: 20181026
  Receipt Date: 20190930
  Transmission Date: 20191004
  Serious: Yes (Other)
  Sender: FDA-Public Use
  Company Number: CA-TEVA-2018-CA-966417

PATIENT
  Age: 41 Year
  Sex: Female

DRUGS (26)
  1. ACETAMINOPHEN AND CODEINE [Suspect]
     Active Substance: ACETAMINOPHEN\CODEINE PHOSPHATE
     Indication: NEURALGIA
  2. TAPENTADOL HYDROCHLORIDE [Suspect]
     Active Substance: TAPENTADOL HYDROCHLORIDE
     Indication: PAIN
     Route: 065
  3. NUCYNTA [Suspect]
     Active Substance: TAPENTADOL HYDROCHLORIDE
     Indication: NEURALGIA
  4. APO-CARBAMAZEPINE [Suspect]
     Active Substance: CARBAMAZEPINE
     Indication: PAIN
     Route: 065
  5. CARBAMAZEPINE. [Suspect]
     Active Substance: CARBAMAZEPINE
     Indication: NEURALGIA
  6. MORPHINE SULFATE. [Suspect]
     Active Substance: MORPHINE SULFATE
     Indication: PAIN
     Route: 065
  7. BUPROPION. [Suspect]
     Active Substance: BUPROPION
     Indication: NEURALGIA
  8. CARBAMAZEPINE. [Suspect]
     Active Substance: CARBAMAZEPINE
     Indication: PAIN
     Route: 065
  9. MORPHINE [Suspect]
     Active Substance: MORPHINE
     Indication: PAIN
     Route: 065
  10. METHADOSE SUGAR-FREE [Suspect]
     Active Substance: METHADONE HYDROCHLORIDE
     Indication: PAIN
     Route: 065
  11. APO-NAPROXEN [Suspect]
     Active Substance: NAPROXEN
     Indication: PAIN
     Route: 065
  12. HYDROMORPHONE [Suspect]
     Active Substance: HYDROMORPHONE
     Indication: PAIN
     Route: 065
  13. ACETAMINOPHEN AND CODEINE [Suspect]
     Active Substance: ACETAMINOPHEN\CODEINE PHOSPHATE
     Indication: PAIN
     Route: 065
  14. BUPROPION. [Suspect]
     Active Substance: BUPROPION
     Indication: PAIN
     Route: 065
  15. NAPROXEN. [Suspect]
     Active Substance: NAPROXEN
     Indication: PAIN
     Route: 065
  16. METHADONE [Suspect]
     Active Substance: METHADONE HYDROCHLORIDE
     Indication: NEURALGIA
  17. BUPROPION. [Suspect]
     Active Substance: BUPROPION
     Indication: PRODUCT USED FOR UNKNOWN INDICATION
  18. HYDROMORPHONE [Suspect]
     Active Substance: HYDROMORPHONE
     Indication: NEURALGIA
  19. NAPROXEN. [Suspect]
     Active Substance: NAPROXEN
     Indication: NEURALGIA
  20. NUCYNTA [Suspect]
     Active Substance: TAPENTADOL HYDROCHLORIDE
     Indication: PAIN
     Route: 065
  21. APO-ACETAMINOPHEN [Suspect]
     Active Substance: ACETAMINOPHEN
     Indication: PAIN
     Route: 065
  22. APO-HYDROMORPHONE [Suspect]
     Active Substance: HYDROMORPHONE
     Indication: PAIN
     Route: 065
  23. HYDROMORPHONE HYDROCHLORIDE. [Suspect]
     Active Substance: HYDROMORPHONE HYDROCHLORIDE
     Indication: PAIN
     Route: 065
  24. METHADONE [Suspect]
     Active Substance: METHADONE HYDROCHLORIDE
     Indication: PAIN
     Route: 065
  25. MORPHINE SULFATE INJECTION 1MG/ML [Suspect]
     Active Substance: MORPHINE SULFATE
     Indication: PAIN
     Route: 065
  26. MORPHINE SULFATE INJECTION 1MG/ML [Suspect]
     Active Substance: MORPHINE SULFATE
     Indication: NEURALGIA

REACTIONS (3)
  - Stevens-Johnson syndrome [Unknown]
  - Drug ineffective [Unknown]
  - Drug intolerance [Unknown]
